FAERS Safety Report 8559858-7 (Version None)
Quarter: 2012Q3

REPORT INFORMATION
  Report Type: 
  Country: None (occurrence: None)
  Receive Date: 20120802
  Receipt Date: 20120726
  Transmission Date: 20120928
  Serious: Yes (Hospitalization, Other)
  Sender: FDA-Public Use
  Company Number: DE-JNJFOC-20110510322

PATIENT
  Sex: Female
  Weight: 22 kg

DRUGS (4)
  1. REMICADE [Suspect]
     Route: 042
     Dates: start: 20080617
  2. COTRIM [Concomitant]
  3. REMICADE [Suspect]
     Indication: CROHN'S DISEASE
     Route: 042
     Dates: start: 20091210
  4. AZATHIOPRINE [Concomitant]

REACTIONS (2)
  - ABDOMINAL PAIN [None]
  - TREATMENT FAILURE [None]
